FAERS Safety Report 6615671-9 (Version None)
Quarter: 2010Q1

REPORT INFORMATION
  Report Type: 
  Country: None (occurrence: None)
  Receive Date: 20100305
  Receipt Date: 20100217
  Transmission Date: 20100710
  Serious: Yes (Death)
  Sender: FDA-Public Use
  Company Number: US-BAYER-201017412GPV

PATIENT

DRUGS (8)
  1. FLUDARABINE [Suspect]
     Indication: STEM CELL TRANSPLANT
     Route: 042
  2. MELPHALAN [Suspect]
     Indication: STEM CELL TRANSPLANT
     Route: 042
  3. SIROLIMUS [Concomitant]
     Indication: PROPHYLAXIS AGAINST GRAFT VERSUS HOST DISEASE
     Route: 048
  4. SIROLIMUS [Concomitant]
     Dosage: THE 4-MG DOSE BEING ADJUSTED AS NECESSARY TO  MAINTAIN SERUM LEVELS BETWEEN 3 AND 12 NG/ML BY HPLC
     Route: 048
  5. TACROLIMUS [Concomitant]
     Indication: PROPHYLAXIS AGAINST GRAFT VERSUS HOST DISEASE
     Route: 042
  6. TACROLIMUS [Concomitant]
     Dosage: MAINTAIN TARGET SERUM LEVELS OF 5 TO 10 NG/ML
     Route: 048
  7. ANTIBIOTICS [Concomitant]
     Indication: INFECTION PROPHYLAXIS
  8. ANTIFUNGALS [Concomitant]
     Indication: ANTIFUNGAL TREATMENT

REACTIONS (1)
  - PULMONARY ALVEOLAR HAEMORRHAGE [None]
